FAERS Safety Report 6599563-X (Version None)
Quarter: 2010Q1

REPORT INFORMATION
  Report Type: 
  Country: None (occurrence: None)
  Receive Date: 20100224
  Receipt Date: 20100211
  Transmission Date: 20100710
  Serious: Yes (Hospitalization, Other)
  Sender: FDA-Public Use
  Company Number: US-ELI_LILLY_AND_COMPANY-US201002004260

PATIENT
  Sex: Female

DRUGS (3)
  1. ZYPREXA [Suspect]
     Dosage: UNK, UNKNOWN
     Route: 065
  2. SYNTHROID [Concomitant]
     Indication: HYPOTHYROIDISM
     Dosage: UNK, UNKNOWN
     Route: 065
  3. ANTIHYPERTENSIVES [Concomitant]

REACTIONS (9)
  - AGITATION [None]
  - DEHYDRATION [None]
  - DYSPNOEA [None]
  - GAIT DISTURBANCE [None]
  - HOSPITALISATION [None]
  - INSOMNIA [None]
  - THINKING ABNORMAL [None]
  - URINARY TRACT INFECTION [None]
  - WEIGHT INCREASED [None]
